FAERS Safety Report 4548506-9 (Version None)
Quarter: 2004Q4

REPORT INFORMATION
  Report Type: 
  Country: None (occurrence: None)
  Receive Date: 20041227
  Receipt Date: 20041109
  Transmission Date: 20050328
  Serious: No
  Sender: FDA-Public Use
  Company Number: 04P-163-0280034-00

PATIENT
  Age: 45 Year
  Sex: Female
  Weight: 56.6996 kg

DRUGS (6)
  1. HUMIRA [Suspect]
     Indication: RHEUMATOID ARTHRITIS
     Dosage: 40 MG, 1 IN 2 WK, SUBCUTANEOUS
     Route: 058
     Dates: start: 20041018, end: 20041101
  2. LEFLUNOMIDE [Concomitant]
  3. PREDNISONE [Concomitant]
  4. VALPROATE SODIUM [Concomitant]
  5. PRIMIDONE [Concomitant]
  6. CALCIUM GLUCONATE [Concomitant]

REACTIONS (3)
  - BLOOD PRESSURE INCREASED [None]
  - HEADACHE [None]
  - HYPERSENSITIVITY [None]
